FAERS Safety Report 15315210 (Version 1)
Quarter: 2018Q3

REPORT INFORMATION
  Report Type: Spontaneous
  Country: US (occurrence: US)
  Receive Date: 20180824
  Receipt Date: 20180824
  Transmission Date: 20181010
  Serious: Yes (Other)
  Sender: FDA-Public Use
  Company Number: US-FRESENIUS KABI-FK201808900

PATIENT
  Age: 38 Year
  Sex: Female

DRUGS (6)
  1. METOCLOPRAMIDE. [Concomitant]
     Active Substance: METOCLOPRAMIDE
     Indication: PREMEDICATION
  2. LIDOCAINE (MANUFACTURER UNKNOWN) [Suspect]
     Active Substance: LIDOCAINE
     Indication: INDUCTION OF ANAESTHESIA
     Route: 065
  3. SUCCINYLCHOLINE [Suspect]
     Active Substance: SUCCINYLCHOLINE
     Indication: INDUCTION OF ANAESTHESIA
     Route: 065
  4. FAMOTIDINE. [Concomitant]
     Active Substance: FAMOTIDINE
     Indication: PREMEDICATION
  5. PROPOFOL (MANUFACTURER UNKNOWN) [Suspect]
     Active Substance: PROPOFOL
     Indication: INDUCTION OF ANAESTHESIA
     Route: 065
  6. FENTANYL. [Suspect]
     Active Substance: FENTANYL
     Indication: INDUCTION OF ANAESTHESIA
     Route: 065

REACTIONS (2)
  - Maternal exposure during pregnancy [Recovered/Resolved]
  - Foetal heart rate deceleration abnormality [Recovered/Resolved]
